FAERS Safety Report 4784641-8 (Version None)
Quarter: 2005Q3

REPORT INFORMATION
  Report Type: 
  Country: None (occurrence: None)
  Receive Date: 20050930
  Receipt Date: 20050907
  Transmission Date: 20060218
  Serious: Yes (Congenital Anomaly)
  Sender: FDA-Public Use
  Company Number: CH-MERCK-0509CHE00021B1

PATIENT
  Sex: Male

DRUGS (1)
  1. PROPECIA [Suspect]

REACTIONS (2)
  - HEART DISEASE CONGENITAL [None]
  - TRANSMISSION OF DRUG VIA SEMEN [None]
